FAERS Safety Report 8716048 (Version 2)
Quarter: 2013Q1

REPORT INFORMATION
  Report Type: Other
  Country: GB (occurrence: GB)
  Receive Date: 20120809
  Receipt Date: 20130117
  Transmission Date: 20140127
  Serious: Yes (Disabling)
  Sender: FDA-Public Use
  Company Number: GB-WATSON-2012-14017

PATIENT
  Age: 72 Year
  Sex: Male

DRUGS (4)
  1. BISOPROLOL (UNKNOWN) [Suspect]
     Indication: ATRIAL FIBRILLATION
     Dosage: 5 MG, UNKNOWN
     Route: 065
     Dates: start: 201105, end: 20120704
  2. METOPROLOL TARTRATE (UNKNOWN) [Suspect]
     Indication: ATRIAL FIBRILLATION
     Dosage: UNK
     Route: 048
     Dates: start: 2010, end: 201111
  3. DILTIAZEM [Concomitant]
     Indication: PRODUCT USED FOR UNKNOWN INDICATION
     Dosage: 60 MG, UNKNOWN
  4. WARFARIN [Concomitant]
     Indication: PRODUCT USED FOR UNKNOWN INDICATION
     Route: 048

REACTIONS (2)
  - Asthenia [Recovered/Resolved]
  - Fatigue [Recovered/Resolved]
